FAERS Safety Report 22331925 (Version 1)
Quarter: 2023Q2

REPORT INFORMATION
  Report Type: Spontaneous
  Country: US (occurrence: None)
  Receive Date: 20230515
  Receipt Date: 20230515
  Transmission Date: 20230722
  Serious: No
  Sender: FDA-Public Use
  Company Number: None

PATIENT
  Sex: Female

DRUGS (1)
  1. TETRABENAZINE [Suspect]
     Active Substance: TETRABENAZINE
     Indication: Chorea
     Dosage: OTHER QUANTITY : 6.25MG;?FREQUENCY : TWICE A DAY;?
     Route: 048
     Dates: start: 202304

REACTIONS (2)
  - Drug ineffective [None]
  - Therapy cessation [None]
